FAERS Safety Report 8317887-2 (Version None)
Quarter: 2012Q2

REPORT INFORMATION
  Report Type: 
  Country: None (occurrence: None)
  Receive Date: 20120427
  Receipt Date: 20120213
  Transmission Date: 20120825
  Serious: No
  Sender: FDA-Public Use
  Company Number: US-MYLANLABS-2012S1003452

PATIENT
  Sex: Female

DRUGS (1)
  1. METHIMAZOLE [Suspect]

REACTIONS (1)
  - DRUG EFFECT DECREASED [None]
